FAERS Safety Report 15628416 (Version 1)
Quarter: 2018Q4

REPORT INFORMATION
  Report Type: Other
  Country: CA (occurrence: CA)
  Receive Date: 20181116
  Receipt Date: 20181116
  Transmission Date: 20190205
  Serious: Yes (Other)
  Sender: FDA-Public Use
  Company Number: CA-ASTELLAS-2018US049327

PATIENT
  Age: 74 Year
  Sex: Female

DRUGS (2)
  1. SOLIFENACIN [Suspect]
     Active Substance: SOLIFENACIN
     Indication: URINARY INCONTINENCE
     Route: 065
  2. SOLIFENACIN TEVA PHARMA [Suspect]
     Active Substance: SOLIFENACIN SUCCINATE
     Indication: URINARY INCONTINENCE
     Route: 065

REACTIONS (3)
  - Urinary incontinence [Recovered/Resolved]
  - Drug ineffective [Recovered/Resolved]
  - Vulvovaginal discomfort [Recovered/Resolved]
